FAERS Safety Report 10664539 (Version 2)
Quarter: 2014Q4

REPORT INFORMATION
  Report Type: Spontaneous
  Country: US (occurrence: US)
  Receive Date: 20141219
  Receipt Date: 20141219
  Transmission Date: 20150529
  Serious: No
  Sender: FDA-Public Use
  Company Number: US-BAUSCH-SYM-2014-23828

PATIENT
  Sex: Female

DRUGS (1)
  1. CARDIZEM [Suspect]
     Active Substance: DILTIAZEM HYDROCHLORIDE
     Indication: PRODUCT USED FOR UNKNOWN INDICATION

REACTIONS (11)
  - Abdominal pain upper [Unknown]
  - Hypersensitivity [Unknown]
  - Pharyngeal oedema [Unknown]
  - Erythema [Unknown]
  - Malaise [Unknown]
  - Asthenia [Unknown]
  - Swelling [Unknown]
  - Drug ineffective [Recovered/Resolved]
  - Rash macular [Unknown]
  - Headache [Unknown]
  - Ear pain [Unknown]
